FAERS Safety Report 11518160 (Version 1)
Quarter: 2015Q3

REPORT INFORMATION
  Report Type: Spontaneous
  Country: FI (occurrence: FI)
  Receive Date: 20150917
  Receipt Date: 20150917
  Transmission Date: 20151125
  Serious: Yes (Death, Other)
  Sender: FDA-Public Use
  Company Number: FI-ELI_LILLY_AND_COMPANY-FI201509004485

PATIENT
  Age: 55 Year
  Sex: Male

DRUGS (2)
  1. GEMCITABINE HYDROCHLORIDE. [Suspect]
     Active Substance: GEMCITABINE HYDROCHLORIDE
     Indication: BLADDER CANCER
     Dosage: 1000 MG/M2, CYCLICAL
     Route: 065
  2. CISPLATIN. [Concomitant]
     Active Substance: CISPLATIN
     Dosage: 70 MG/M2, UNKNOWN
     Route: 065

REACTIONS (12)
  - Cardiac failure [Unknown]
  - Vasculitis [Unknown]
  - Sepsis [Fatal]
  - Skin discolouration [Unknown]
  - Localised infection [Unknown]
  - Oedema [Unknown]
  - Urinary fistula [Unknown]
  - Malignant neoplasm progression [Unknown]
  - Skin ulcer [Unknown]
  - Pericardial effusion [Unknown]
  - Dry skin [Unknown]
  - Extremity necrosis [Unknown]
